FAERS Safety Report 5710565-5 (Version None)
Quarter: 2008Q2

REPORT INFORMATION
  Report Type: 
  Country: None (occurrence: None)
  Receive Date: 20080415
  Receipt Date: 20080404
  Transmission Date: 20081010
  Serious: Yes (Other)
  Sender: FDA-Public Use
  Company Number: 236799K07USA

PATIENT
  Age: 54 Year
  Sex: Female

DRUGS (1)
  1. REBIF [Suspect]
     Indication: MULTIPLE SCLEROSIS
     Dosage: 44 MCG, AS REQUIRED, SUBCUTANEOUS
     Route: 058
     Dates: start: 20050722, end: 20070905

REACTIONS (3)
  - LIVER DISORDER [None]
  - PULMONARY GRANULOMA [None]
  - SARCOIDOSIS [None]
